FAERS Safety Report 6823886-X (Version None)
Quarter: 2010Q3

REPORT INFORMATION
  Report Type: 
  Country: None (occurrence: None)
  Receive Date: 20100708
  Receipt Date: 20060911
  Transmission Date: 20110219
  Serious: No
  Sender: FDA-Public Use
  Company Number: US-PFIZER INC-2006111709

PATIENT
  Sex: Male

DRUGS (2)
  1. CHANTIX [Suspect]
  2. WELLBUTRIN [Suspect]
     Indication: ANTIDEPRESSANT THERAPY

REACTIONS (2)
  - IRRITABILITY [None]
  - MOOD SWINGS [None]
